FAERS Safety Report 14190746 (Version 1)
Quarter: 2017Q4

REPORT INFORMATION
  Report Type: Spontaneous
  Country: US (occurrence: US)
  Receive Date: 20171114
  Receipt Date: 20171114
  Transmission Date: 20180321
  Serious: Yes (Disabling)
  Sender: FDA-Public Use
  Company Number: None

PATIENT
  Age: 56 Year
  Sex: Female
  Weight: 72 kg

DRUGS (7)
  1. TRAMADOL HCL [Suspect]
     Active Substance: TRAMADOL HYDROCHLORIDE
     Indication: FIBROMYALGIA
     Dosage: ?          QUANTITY:2 TABLET(S);?
     Route: 048
     Dates: start: 20170101, end: 20171111
  2. TRAMADOL HCL [Suspect]
     Active Substance: TRAMADOL HYDROCHLORIDE
     Indication: ARTHRALGIA
     Dosage: ?          QUANTITY:2 TABLET(S);?
     Route: 048
     Dates: start: 20170101, end: 20171111
  3. CPAP MACHINE [Concomitant]
  4. CYCLOBENZAPRINE. [Suspect]
     Active Substance: CYCLOBENZAPRINE
     Indication: ARTHRITIS
     Dosage: ?          QUANTITY:1 TABLET(S);?
     Route: 048
     Dates: start: 20161101, end: 20171111
  5. VITAMIN B12 [Concomitant]
     Active Substance: CYANOCOBALAMIN
  6. CYCLOBENZAPRINE. [Suspect]
     Active Substance: CYCLOBENZAPRINE
     Indication: FIBROMYALGIA
     Dosage: ?          QUANTITY:1 TABLET(S);?
     Route: 048
     Dates: start: 20161101, end: 20171111
  7. VITAMIN D3 [Concomitant]
     Active Substance: CHOLECALCIFEROL

REACTIONS (21)
  - Migraine [None]
  - Somnolence [None]
  - Fatigue [None]
  - Confusional state [None]
  - Muscular weakness [None]
  - Sinus congestion [None]
  - Feeling abnormal [None]
  - Bradyphrenia [None]
  - Pain [None]
  - Disturbance in attention [None]
  - Aphasia [None]
  - Rash [None]
  - Constipation [None]
  - Dizziness [None]
  - Fall [None]
  - Gait disturbance [None]
  - Musculoskeletal stiffness [None]
  - Ear disorder [None]
  - Vomiting [None]
  - Vision blurred [None]
  - Dysgeusia [None]

NARRATIVE: CASE EVENT DATE: 20171109
